FAERS Safety Report 5389124-2 (Version None)
Quarter: 2007Q3

REPORT INFORMATION
  Report Type: 
  Country: None (occurrence: None)
  Receive Date: 20070713
  Receipt Date: 20070713
  Transmission Date: 20080115
  Serious: Yes (Hospitalization)
  Sender: FDA-Public Use
  Company Number: None

PATIENT
  Age: 49 Year
  Sex: Male

DRUGS (5)
  1. ABILIFY [Suspect]
     Dosage: 5 MG DAILY
  2. TEGRETOL [Suspect]
  3. RISPERDAL [Concomitant]
  4. LISINOPRIL [Concomitant]
  5. DETROL LA [Concomitant]

REACTIONS (9)
  - BLOOD POTASSIUM DECREASED [None]
  - DEHYDRATION [None]
  - DERMATITIS [None]
  - GENERAL PHYSICAL HEALTH DETERIORATION [None]
  - INCONTINENCE [None]
  - NEUROLEPTIC MALIGNANT SYNDROME [None]
  - PHARYNGITIS [None]
  - SEPSIS [None]
  - VIRAL INFECTION [None]
